FAERS Safety Report 9543441 (Version 1)
Quarter: 2013Q3

REPORT INFORMATION
  Report Type: Spontaneous
  Country: US (occurrence: US)
  Receive Date: 20130923
  Receipt Date: 20130923
  Transmission Date: 20140515
  Serious: No
  Sender: FDA-Public Use
  Company Number: US-PFIZER INC-2013270123

PATIENT
  Age: 85 Year
  Sex: Female
  Weight: 66.21 kg

DRUGS (1)
  1. LIPITOR [Suspect]
     Indication: BLOOD CHOLESTEROL INCREASED
     Dosage: 20 MG, DAILY
     Dates: start: 2012

REACTIONS (3)
  - Weight decreased [Unknown]
  - Abdominal pain upper [Recovered/Resolved]
  - Intentional drug misuse [Unknown]
